FAERS Safety Report 12559454 (Version 4)
Quarter: 2016Q3

REPORT INFORMATION
  Report Type: Spontaneous
  Country: US (occurrence: US)
  Receive Date: 20160715
  Receipt Date: 20160922
  Transmission Date: 20161109
  Serious: No
  Sender: FDA-Public Use
  Company Number: US-PFIZER INC-2016328687

PATIENT
  Age: 63 Year
  Sex: Female

DRUGS (4)
  1. SERTRALINE [Concomitant]
     Active Substance: SERTRALINE HYDROCHLORIDE
     Indication: DEPRESSION
     Dosage: 50 MG, 1X/DAY(100 MG 1/2 TAB ONCE DAILY)
     Dates: start: 20160722
  2. PRISTIQ EXTENDED-RELEASE [Suspect]
     Active Substance: DESVENLAFAXINE SUCCINATE
     Indication: DEPRESSION
     Dosage: 50 MG, 1X/DAY
     Route: 048
     Dates: start: 20160412, end: 20160722
  3. DIAZEPAM. [Concomitant]
     Active Substance: DIAZEPAM
     Indication: ANXIETY
     Dosage: 10 MG, 3X/DAY
  4. REQUIP [Concomitant]
     Active Substance: ROPINIROLE HYDROCHLORIDE
     Indication: RESTLESS LEGS SYNDROME
     Dosage: 1 MG, 3X/DAY

REACTIONS (9)
  - Disturbance in attention [Unknown]
  - Depression [Unknown]
  - Insomnia [Unknown]
  - Irritability [Unknown]
  - Feeling abnormal [Recovered/Resolved]
  - Restlessness [Unknown]
  - Anger [Unknown]
  - Condition aggravated [Unknown]
  - Mood altered [Unknown]

NARRATIVE: CASE EVENT DATE: 2016
